FAERS Safety Report 4391549-9 (Version None)
Quarter: 2004Q3

REPORT INFORMATION
  Report Type: 
  Country: None (occurrence: None)
  Receive Date: 20040702
  Receipt Date: 20040406
  Transmission Date: 20050211
  Serious: No
  Sender: FDA-Public Use
  Company Number: 2004UW04401

PATIENT
  Age: 69 Year
  Sex: Female
  Weight: 58.9676 kg

DRUGS (2)
  1. CRESTOR [Suspect]
     Indication: HYPERLIPIDAEMIA
     Dosage: 10 MG QD PO
     Route: 048
     Dates: start: 20040113, end: 20040301
  2. NORVASC [Concomitant]

REACTIONS (4)
  - DYSPHAGIA [None]
  - GINGIVAL SWELLING [None]
  - MUSCLE CRAMP [None]
  - MUSCULAR WEAKNESS [None]
